FAERS Safety Report 9951201 (Version 1)
Quarter: 2014Q1

REPORT INFORMATION
  Report Type: Spontaneous
  Country: PR (occurrence: PR)
  Receive Date: 20140304
  Receipt Date: 20140304
  Transmission Date: 20141002
  Serious: No
  Sender: FDA-Public Use
  Company Number: PR-ABBVIE-13P-131-1069575-00

PATIENT
  Sex: Female
  Weight: 83.99 kg

DRUGS (9)
  1. HUMIRA [Suspect]
     Indication: ANKYLOSING SPONDYLITIS
     Dosage: EVERY 15 DAYS
     Route: 058
     Dates: start: 201103, end: 201303
  2. HUMIRA [Suspect]
     Indication: PSORIATIC ARTHROPATHY
  3. METHOTREXATE [Concomitant]
     Indication: PSORIATIC ARTHROPATHY
     Dosage: TOTAL DAILY DOSE: 5 MG 2 DAYS ON WEEK; 2 TAB WEDNESDAY, 2 TAB THURSDAY
     Route: 048
  4. FOLIC ACID [Concomitant]
     Indication: PRODUCT USED FOR UNKNOWN INDICATION
     Dosage: DAILY
     Route: 048
  5. NAPROXEN [Concomitant]
     Indication: PAIN
     Route: 048
  6. CYMBALTA [Concomitant]
     Indication: DEPRESSION
     Dosage: DAILY
     Route: 048
  7. PROXOM [Concomitant]
     Indication: ANXIETY
     Dosage: DAILY
     Route: 048
  8. KLONOPIN [Concomitant]
     Indication: DEPRESSION
     Route: 048
  9. SIMVASTATIN [Concomitant]
     Indication: BLOOD CHOLESTEROL INCREASED
     Dosage: DAILY
     Route: 048
     Dates: end: 2012

REACTIONS (2)
  - Back pain [Recovering/Resolving]
  - Blood cholesterol increased [Unknown]
